FAERS Safety Report 8788819 (Version 1)
Quarter: 2012Q4

REPORT INFORMATION
  Report Type: 
  Country: TR (occurrence: TR)
  Receive Date: 20120916
  Receipt Date: 20120916
  Transmission Date: 20130627
  Serious: Yes (Life-Threatening)
  Sender: FDA-Public Use
  Company Number: TR-009507513-1209TUR003002

PATIENT

DRUGS (2)
  1. TEMODAL [Suspect]
     Indication: GLIOBLASTOMA MULTIFORME
     Dosage: 75 mg/m2, qd
  2. TEMODAL [Suspect]
     Indication: ANAPLASTIC ASTROCYTOMA
     Dosage: 150-200 mg/m2, for 5 days every 28 days for at least 6 cycles

REACTIONS (8)
  - Febrile neutropenia [Unknown]
  - Thrombocytopenia [Unknown]
  - Neutropenia [Unknown]
  - Nausea [Unknown]
  - Vomiting [Unknown]
  - Asthenia [Unknown]
  - Deep vein thrombosis [Unknown]
  - Skin toxicity [Unknown]
